FAERS Safety Report 9432534 (Version 1)
Quarter: 2013Q3

REPORT INFORMATION
  Report Type: Spontaneous
  Country: IT (occurrence: IT)
  Receive Date: 20130731
  Receipt Date: 20130731
  Transmission Date: 20140515
  Serious: Yes (Hospitalization)
  Sender: FDA-Public Use
  Company Number: PHHY2013IT079119

PATIENT
  Sex: Female

DRUGS (1)
  1. SANDIMMUN [Suspect]
     Dates: start: 20130701, end: 20130704

REACTIONS (4)
  - Ocular hyperaemia [Recovered/Resolved]
  - Dysaesthesia [Recovered/Resolved]
  - Eye pain [Recovered/Resolved]
  - Nausea [Recovered/Resolved]
